FAERS Safety Report 10931048 (Version 1)
Quarter: 2015Q1

REPORT INFORMATION
  Report Type: Spontaneous
  Country: US (occurrence: US)
  Receive Date: 20150319
  Receipt Date: 20150319
  Transmission Date: 20150721
  Serious: No
  Sender: FDA-Public Use
  Company Number: US-BAUSCH-SYM-2014-19240

PATIENT
  Sex: Female
  Weight: 54.88 kg

DRUGS (3)
  1. TRETINOIN RX [Suspect]
     Active Substance: TRETINOIN
     Indication: SKIN DISCOLOURATION
     Dosage: 1 FINGERTIPFUL AT BEDTIME
     Route: 061
     Dates: start: 20140217, end: 20140323
  2. ATENOLOL. [Concomitant]
     Active Substance: ATENOLOL
     Indication: PRODUCT USED FOR UNKNOWN INDICATION
     Dates: start: 1984
  3. HYDROQUINONE. [Concomitant]
     Active Substance: HYDROQUINONE
     Indication: PRODUCT USED FOR UNKNOWN INDICATION
     Dates: start: 20140217, end: 20140323

REACTIONS (1)
  - Drug ineffective for unapproved indication [Unknown]
